FAERS Safety Report 21334109 (Version 1)
Quarter: 2022Q3

REPORT INFORMATION
  Report Type: Spontaneous
  Country: US (occurrence: None)
  Receive Date: 20220913
  Receipt Date: 20220913
  Transmission Date: 20221026
  Serious: No
  Sender: FDA-Public Use
  Company Number: None

PATIENT
  Age: 74 Year
  Sex: Male
  Weight: 78.93 kg

DRUGS (7)
  1. CAPECITABINE [Suspect]
     Active Substance: CAPECITABINE
     Indication: Rectal cancer
     Dosage: FREQUENCY : TWICE A DAY;?
     Route: 048
  2. ATORVASTATIN CALCIUM [Concomitant]
  3. ELIQUIS [Concomitant]
  4. HYDROCHOLOROTHIAZIDE [Concomitant]
  5. LISINOPRIL [Concomitant]
  6. MULTIVITAMIN [Concomitant]
  7. PROBIOTIC [Concomitant]

REACTIONS (1)
  - Hepatic enzyme increased [None]
